FAERS Safety Report 6211256-7 (Version None)
Quarter: 2009Q2

REPORT INFORMATION
  Report Type: 
  Country: None (occurrence: None)
  Receive Date: 20090602
  Receipt Date: 20090527
  Transmission Date: 20091009
  Serious: Yes (Death, Other)
  Sender: FDA-Public Use
  Company Number: PHHY2009BR20514

PATIENT

DRUGS (3)
  1. CYCLOSPORINE [Suspect]
     Indication: HEART TRANSPLANT
  2. AZATHIOPRINE [Suspect]
     Indication: HEART TRANSPLANT
  3. STEROIDS NOS [Suspect]
     Indication: HEART TRANSPLANT

REACTIONS (2)
  - HEART TRANSPLANT REJECTION [None]
  - INFECTION [None]
